FAERS Safety Report 4843618-4 (Version None)
Quarter: 2005Q4

REPORT INFORMATION
  Report Type: 
  Country: None (occurrence: None)
  Receive Date: 20051125
  Receipt Date: 20051110
  Transmission Date: 20060501
  Serious: Yes (Hospitalization)
  Sender: FDA-Public Use
  Company Number: US200511000058

PATIENT
  Age: 26 Year
  Sex: Female

DRUGS (2)
  1. HUMALOG [Suspect]
     Dates: start: 20030101
  2. HUMALOG PEN (HUMALOG PEN) [Concomitant]

REACTIONS (2)
  - METABOLIC DISORDER [None]
  - POOR QUALITY DRUG ADMINISTERED [None]
